FAERS Safety Report 9494695 (Version 3)
Quarter: 2013Q4

REPORT INFORMATION
  Report Type: Spontaneous
  Country: AU (occurrence: AU)
  Receive Date: 20130903
  Receipt Date: 20131001
  Transmission Date: 20140711
  Serious: Yes (Other)
  Sender: FDA-Public Use
  Company Number: AU-ASTRAZENECA-2013SE56030

PATIENT
  Age: 62 Year
  Sex: Female

DRUGS (5)
  1. SEROQUEL XR [Suspect]
     Indication: SCHIZOPHRENIA
     Route: 048
     Dates: start: 20090915
  2. COGENTIN [Concomitant]
     Indication: EXTRAPYRAMIDAL DISORDER
     Dosage: 0.5 MG IN THE MORNING WEEKLY
     Dates: start: 2012
  3. HALDOL [Concomitant]
     Indication: SCHIZOPHRENIA
     Route: 030
     Dates: start: 20090310
  4. DIABEX [Concomitant]
     Indication: DIABETES MELLITUS
     Route: 048
     Dates: start: 2013
  5. GALVUS [Concomitant]
     Indication: DIABETES MELLITUS
     Dosage: BD
     Route: 048
     Dates: start: 2013

REACTIONS (1)
  - Liver function test abnormal [Recovering/Resolving]
